FAERS Safety Report 5846085-7 (Version None)
Quarter: 2008Q3

REPORT INFORMATION
  Report Type: 
  Country: None (occurrence: None)
  Receive Date: 20080813
  Receipt Date: 20080725
  Transmission Date: 20090109
  Serious: Yes (Hospitalization)
  Sender: FDA-Public Use
  Company Number: US023496

PATIENT
  Age: 42 Year
  Sex: Female
  Weight: 55.3388 kg

DRUGS (26)
  1. ACTIQ [Suspect]
     Indication: FIBROMYALGIA
     Dosage: UNK BUCCAL
     Route: 002
     Dates: start: 20040707, end: 20050501
  2. ACTIQ [Suspect]
     Indication: HEADACHE
     Dosage: UNK BUCCAL
     Route: 002
     Dates: start: 20040707, end: 20050501
  3. ACTIQ [Suspect]
     Indication: TRIGEMINAL NEURALGIA
     Dosage: UNK BUCCAL
     Route: 002
     Dates: start: 20040707, end: 20050501
  4. ACTIQ [Suspect]
     Indication: FIBROMYALGIA
     Dosage: UNK BUCCAL
     Route: 002
     Dates: start: 20050502
  5. ACTIQ [Suspect]
     Indication: HEADACHE
     Dosage: UNK BUCCAL
     Route: 002
     Dates: start: 20050502
  6. ACTIQ [Suspect]
     Indication: TRIGEMINAL NEURALGIA
     Dosage: UNK BUCCAL
     Route: 002
     Dates: start: 20050502
  7. ACTIQ [Suspect]
     Indication: FIBROMYALGIA
     Dosage: 800 UG TID BUCCAL
     Route: 002
     Dates: start: 20050101, end: 20051005
  8. ACTIQ [Suspect]
     Indication: HEADACHE
     Dosage: 800 UG TID BUCCAL
     Route: 002
     Dates: start: 20050101, end: 20051005
  9. ACTIQ [Suspect]
     Indication: TRIGEMINAL NEURALGIA
     Dosage: 800 UG TID BUCCAL
     Route: 002
     Dates: start: 20050101, end: 20051005
  10. ACTIQ [Suspect]
     Indication: FIBROMYALGIA
     Dosage: 600 UG TID BUCCAL
     Route: 002
     Dates: start: 20051006, end: 20060710
  11. ACTIQ [Suspect]
     Indication: HEADACHE
     Dosage: 600 UG TID BUCCAL
     Route: 002
     Dates: start: 20051006, end: 20060710
  12. ACTIQ [Suspect]
     Indication: TRIGEMINAL NEURALGIA
     Dosage: 600 UG TID BUCCAL
     Route: 002
     Dates: start: 20051006, end: 20060710
  13. ACTIQ [Suspect]
     Indication: FIBROMYALGIA
     Dosage: 800 UG TID BUCCAL
     Route: 002
     Dates: start: 20060711
  14. ACTIQ [Suspect]
     Indication: HEADACHE
     Dosage: 800 UG TID BUCCAL
     Route: 002
     Dates: start: 20060711
  15. ACTIQ [Suspect]
     Indication: TRIGEMINAL NEURALGIA
     Dosage: 800 UG TID BUCCAL
     Route: 002
     Dates: start: 20060711
  16. ACTIQ [Suspect]
     Indication: FIBROMYALGIA
     Dosage: 600 UG ONE EVERY 6 HOURS BUCCAL
     Route: 002
     Dates: start: 20060101, end: 20070320
  17. ACTIQ [Suspect]
     Indication: HEADACHE
     Dosage: 600 UG ONE EVERY 6 HOURS BUCCAL
     Route: 002
     Dates: start: 20060101, end: 20070320
  18. ACTIQ [Suspect]
     Indication: TRIGEMINAL NEURALGIA
     Dosage: 600 UG ONE EVERY 6 HOURS BUCCAL
     Route: 002
     Dates: start: 20060101, end: 20070320
  19. XANAX [Suspect]
     Dosage: 2 MG TID ORAL
     Route: 048
  20. XANAX [Suspect]
     Dosage: 4 MG QID ORAL
     Route: 048
     Dates: end: 20070320
  21. XANAX [Suspect]
     Dosage: ORAL
     Route: 048
     Dates: start: 20050711, end: 20060701
  22. XANAX [Suspect]
     Dosage: ORAL
     Route: 048
     Dates: start: 20060925
  23. DILAUDID [Suspect]
     Indication: PAIN
     Dosage: 2 MG Q4HR ORAL
     Route: 048
  24. DILAUDID [Suspect]
     Indication: PAIN
     Dosage: PRN ORAL
     Route: 048
     Dates: end: 20070301
  25. AMBIEN [Suspect]
     Indication: PAIN
     Dosage: 12.5 MG QHS ORAL
     Route: 048
     Dates: end: 20070319
  26. DEMEROL [Suspect]
     Indication: PAIN
     Dosage: 50 MG EVERY 6 HOURS AS NEEDED ORAL
     Route: 048
     Dates: end: 20070301

REACTIONS (12)
  - BACK INJURY [None]
  - DENTAL CARIES [None]
  - DETOXIFICATION [None]
  - DRUG PRESCRIBING ERROR [None]
  - DRUG WITHDRAWAL SYNDROME [None]
  - JOINT INJURY [None]
  - MEDICATION ERROR [None]
  - NECK INJURY [None]
  - ROAD TRAFFIC ACCIDENT [None]
  - SOMATISATION DISORDER [None]
  - SUBSTANCE ABUSE [None]
  - TOOTHACHE [None]
